FAERS Safety Report 5448184-0 (Version None)
Quarter: 2007Q3

REPORT INFORMATION
  Report Type: 
  Country: None (occurrence: None)
  Receive Date: 20070907
  Receipt Date: 20070907
  Transmission Date: 20080115
  Serious: Yes (Hospitalization)
  Sender: FDA-Public Use
  Company Number: None

PATIENT
  Sex: Female

DRUGS (2)
  1. GEMCITABINE HCL [Suspect]
     Indication: PANCREATIC CARCINOMA
     Dosage: 1GM/M2 QWKX3 IV
     Route: 042
     Dates: start: 20070608, end: 20070814
  2. LAPATINIB [Suspect]
     Indication: PANCREATIC CARCINOMA
     Dosage: 1.5GM/DAY DAYS 1-28 PO
     Route: 048
     Dates: start: 20070608, end: 20070814

REACTIONS (2)
  - GASTROINTESTINAL HAEMORRHAGE [None]
  - MESENTERIC VEIN THROMBOSIS [None]
